FAERS Safety Report 9439391 (Version 8)
Quarter: 2014Q1

REPORT INFORMATION
  Report Type: Report from Study
  Country: DE (occurrence: DE)
  Receive Date: 20130805
  Receipt Date: 20140317
  Transmission Date: 20141002
  Serious: Yes (Life-Threatening, Hospitalization, Other)
  Sender: FDA-Public Use
  Company Number: DE-BIOGENIDEC-2013BI058224

PATIENT
  Age: 53 Year
  Sex: Male
  Weight: 82 kg

DRUGS (8)
  1. TYSABRI [Suspect]
     Indication: RELAPSING-REMITTING MULTIPLE SCLEROSIS
     Route: 042
     Dates: start: 20120525, end: 20130516
  2. BISOPROLOL [Concomitant]
  3. MIRTAZAPINE [Concomitant]
  4. CIPRAMIL [Concomitant]
  5. TIZANIDINE [Concomitant]
  6. CERTOPARIN [Concomitant]
     Route: 058
  7. NOVAMINSULFON [Concomitant]
     Indication: PAIN
  8. LARIAM [Concomitant]
     Dates: end: 20131127

REACTIONS (2)
  - Progressive multifocal leukoencephalopathy [Not Recovered/Not Resolved]
  - Immune reconstitution inflammatory syndrome [Unknown]
